FAERS Safety Report 12121435 (Version 1)
Quarter: 2016Q1

REPORT INFORMATION
  Report Type: Spontaneous
  Country: DE (occurrence: DE)
  Receive Date: 20160226
  Receipt Date: 20160226
  Transmission Date: 20160526
  Serious: Yes (Other)
  Sender: FDA-Public Use
  Company Number: DE-FERRINGPH-2016FE00879

PATIENT

DRUGS (2)
  1. OSMOTICALLY ACTING LAXATIVES [Concomitant]
     Dosage: 200 UNK, UNK
  2. PICOPREP [Suspect]
     Active Substance: CITRIC ACID MONOHYDRATE\MAGNESIUM OXIDE\SODIUM PICOSULFATE
     Indication: BOWEL PREPARATION
     Dosage: 1 SACHET
     Route: 048

REACTIONS (3)
  - Syncope [Unknown]
  - Unresponsive to stimuli [Unknown]
  - Confusional state [Unknown]
